FAERS Safety Report 5100794-6 (Version None)
Quarter: 2006Q3

REPORT INFORMATION
  Report Type: 
  Country: None (occurrence: None)
  Receive Date: 20060906
  Receipt Date: 20060823
  Transmission Date: 20061208
  Serious: Yes (Hospitalization, Other)
  Sender: FDA-Public Use
  Company Number: 2006102677

PATIENT
  Sex: Male
  Weight: 172.3669 kg

DRUGS (9)
  1. VIAGRA [Suspect]
     Indication: ERECTILE DYSFUNCTION
     Dosage: (50 MG), ORAL
     Route: 048
     Dates: start: 19990101
  2. NEURONTIN [Suspect]
     Indication: DIABETIC NEUROPATHY
  3. CHOLESTEROL (CHOLESTEROL) [Concomitant]
  4. VITAMIN E [Concomitant]
  5. ALL OTHER THERAPEUTIC PRODUCTS (ALL OTHER THERAPEUTIC PRODUCTS) [Concomitant]
  6. GLYBURIDE [Concomitant]
  7. DIURETICS (DIURETICS) [Concomitant]
  8. ANTIHYPERTENSIVES (ANTIHYPERTENSIVES) [Concomitant]
  9. .. [Concomitant]

REACTIONS (6)
  - AMNESIA [None]
  - BALANCE DISORDER [None]
  - DRUG INEFFECTIVE [None]
  - FEAR [None]
  - FEELING ABNORMAL [None]
  - MYOCARDIAL INFARCTION [None]
